FAERS Safety Report 5299185-7 (Version None)
Quarter: 2007Q2

REPORT INFORMATION
  Report Type: 
  Country: None (occurrence: None)
  Receive Date: 20070417
  Receipt Date: 20070404
  Transmission Date: 20071010
  Serious: Yes (Disabling, Other)
  Sender: FDA-Public Use
  Company Number: US-AMGEN-US138490

PATIENT
  Sex: Female

DRUGS (9)
  1. PANITUMUMAB [Suspect]
     Indication: COLORECTAL CANCER
     Route: 042
     Dates: start: 20040915, end: 20050526
  2. ATENOLOL [Concomitant]
     Route: 065
     Dates: start: 20000101
  3. LIPITOR [Concomitant]
     Route: 048
     Dates: start: 20000101
  4. LASIX [Concomitant]
     Route: 065
     Dates: start: 20050401, end: 20050609
  5. VITAMIN CAP [Concomitant]
     Route: 048
  6. IRON [Concomitant]
     Route: 048
     Dates: start: 20050301
  7. IMODIUM [Concomitant]
     Route: 048
  8. BACTROBAN [Concomitant]
     Route: 061
     Dates: start: 20050301
  9. FLUTICASONE PROPIONATE [Concomitant]
     Route: 065
     Dates: start: 20050301

REACTIONS (1)
  - FLUID RETENTION [None]
